FAERS Safety Report 7658480-4 (Version None)
Quarter: 2011Q3

REPORT INFORMATION
  Report Type: 
  Country: None (occurrence: None)
  Receive Date: 20110802
  Receipt Date: 20110719
  Transmission Date: 20111222
  Serious: Yes (Other)
  Sender: FDA-Public Use
  Company Number: MC2011000332

PATIENT

DRUGS (1)
  1. ANGIOMAX [Suspect]
     Indication: CARDIAC OPERATION
     Dosage: , INTRAVENOUS
     Route: 042

REACTIONS (2)
  - UNEVALUABLE EVENT [None]
  - OFF LABEL USE [None]
